FAERS Safety Report 10916280 (Version 1)
Quarter: 2015Q1

REPORT INFORMATION
  Report Type: Spontaneous
  Country: US (occurrence: None)
  Receive Date: 20150312
  Receipt Date: 20150312
  Transmission Date: 20150721
  Serious: Yes (Disabling, Other)
  Sender: FDA-Public Use
  Company Number: None

PATIENT
  Age: 36 Year
  Sex: Female
  Weight: 65.77 kg

DRUGS (2)
  1. MIRENA [Suspect]
     Active Substance: LEVONORGESTREL
     Indication: CHEMICAL CONTRACEPTION
     Route: 067
     Dates: start: 20130726, end: 20150311
  2. ZYRTEC [Concomitant]
     Active Substance: CETIRIZINE HYDROCHLORIDE

REACTIONS (9)
  - Abdominal pain upper [None]
  - Back disorder [None]
  - Depressed mood [None]
  - Menorrhagia [None]
  - Loss of libido [None]
  - Headache [None]
  - Acne [None]
  - Vaginal discharge [None]
  - Device dislocation [None]

NARRATIVE: CASE EVENT DATE: 20150311
